FAERS Safety Report 12699743 (Version 1)
Quarter: 2016Q3

REPORT INFORMATION
  Report Type: Spontaneous
  Country: IE (occurrence: IE)
  Receive Date: 20160830
  Receipt Date: 20160830
  Transmission Date: 20161109
  Serious: Yes (Other)
  Sender: FDA-Public Use
  Company Number: PHFR2016IE006933

PATIENT
  Age: 76 Year
  Sex: Female
  Weight: 47 kg

DRUGS (5)
  1. INEGY [Concomitant]
     Active Substance: EZETIMIBE\SIMVASTATIN
     Indication: HYPERCHOLESTEROLAEMIA
     Dosage: 1 DF, QD
     Route: 048
     Dates: start: 20080902
  2. ULTIBRO BREEZHALER [Suspect]
     Active Substance: GLYCOPYRRONIUM\INDACATEROL
     Indication: PRODUCT USED FOR UNKNOWN INDICATION
     Dosage: 1 DF, UNK
     Route: 055
  3. CALCICHEW D3 [Concomitant]
     Active Substance: CALCIUM\CHOLECALCIFEROL
     Indication: OSTEOPOROSIS
     Dosage: 1 DF (1.25 G/200 IU), QD
     Route: 048
     Dates: start: 20080603
  4. VESITIRIM [Concomitant]
     Active Substance: SOLIFENACIN
     Indication: INCONTINENCE
     Dosage: 10 MG, QD
     Route: 048
     Dates: start: 20130426
  5. PARALIEF [Concomitant]
     Indication: PAIN
     Dosage: 1 G, PRN
     Route: 048
     Dates: start: 20080801

REACTIONS (3)
  - Asthenia [Recovered/Resolved]
  - Fall [Recovered/Resolved]
  - Abdominal pain [Unknown]

NARRATIVE: CASE EVENT DATE: 20151110
